FAERS Safety Report 8403148-X (Version None)
Quarter: 2012Q2

REPORT INFORMATION
  Report Type: 
  Country: None (occurrence: None)
  Receive Date: 20120601
  Receipt Date: 20120521
  Transmission Date: 20120825
  Serious: Yes (Hospitalization, Disabling, Other)
  Sender: FDA-Public Use
  Company Number: AT-ELI_LILLY_AND_COMPANY-AT201110002126

PATIENT
  Age: 52 Year
  Sex: Male
  Weight: 108 kg

DRUGS (4)
  1. AVASTIN [Concomitant]
     Indication: CHEMOTHERAPY
     Dosage: 7.5 MG/KG, UNK
     Dates: start: 20110324, end: 20110921
  2. ALIMTA [Suspect]
     Indication: CHEMOTHERAPY
     Dosage: 500 MG/M2, UNK
     Route: 042
     Dates: start: 20110324, end: 20110713
  3. ALIMTA [Suspect]
     Dosage: UNK
  4. CARBOPLATIN [Concomitant]
     Indication: CHEMOTHERAPY
     Dosage: UNK
     Route: 042
     Dates: start: 20110324, end: 20110713

REACTIONS (5)
  - NEOPLASM MALIGNANT [None]
  - RADIATION PNEUMONITIS [None]
  - CARDIOMYOPATHY [None]
  - DYSPNOEA [None]
  - CARDIAC FAILURE [None]
